FAERS Safety Report 11629083 (Version 1)
Quarter: 2015Q4

REPORT INFORMATION
  Report Type: Spontaneous
  Country: JP (occurrence: JP)
  Receive Date: 20151014
  Receipt Date: 20151014
  Transmission Date: 20160304
  Serious: Yes (Other)
  Sender: FDA-Public Use
  Company Number: JP-PFIZER INC-2015097464

PATIENT
  Age: 86 Year
  Sex: Female

DRUGS (1)
  1. CELECOX [Suspect]
     Active Substance: CELECOXIB
     Indication: BONE PAIN
     Dosage: UNK
     Route: 048

REACTIONS (2)
  - Vision blurred [Recovered/Resolved]
  - Age-related macular degeneration [Recovered/Resolved]

NARRATIVE: CASE EVENT DATE: 20150317
